FAERS Safety Report 16109359 (Version 1)
Quarter: 2019Q1

REPORT INFORMATION
  Report Type: Spontaneous
  Country: FR (occurrence: FR)
  Receive Date: 20190324
  Receipt Date: 20190324
  Transmission Date: 20190418
  Serious: Yes (Hospitalization)
  Sender: FDA-Public Use
  Company Number: FR-ACCORD-114853

PATIENT
  Age: 52 Year
  Sex: Female

DRUGS (9)
  1. TELMISARTAN. [Concomitant]
     Active Substance: TELMISARTAN
  2. STAGID [Concomitant]
     Active Substance: METFORMIN PAMOATE
     Dosage: STRENGTH : 700 MG
  3. BACLOFEN. [Concomitant]
     Active Substance: BACLOFEN
  4. FLUOXETINE [Concomitant]
     Active Substance: FLUOXETINE HYDROCHLORIDE
  5. SIMVASTATIN. [Suspect]
     Active Substance: SIMVASTATIN
     Indication: DYSLIPIDAEMIA
     Route: 048
     Dates: end: 20170527
  6. QUETIAPINE ARROW LP [Suspect]
     Active Substance: QUETIAPINE
     Indication: MIXED ANXIETY AND DEPRESSIVE DISORDER
     Dosage: STRENGTH : 50 MG
     Route: 048
     Dates: start: 20170518, end: 20170525
  7. NADOLOL. [Concomitant]
     Active Substance: NADOLOL
     Dosage: STRENGTH : 80 MG
  8. FLECTOR [Suspect]
     Active Substance: DICLOFENAC EPOLAMINE
     Indication: BACK PAIN
     Dosage: 1 PERCENT
     Route: 003
     Dates: start: 20170523, end: 20170526
  9. INEXIUM [Concomitant]
     Active Substance: ESOMEPRAZOLE
     Dosage: STRENGTH : 40 MG

REACTIONS (5)
  - Eczema [Recovered/Resolved]
  - Pruritus [Recovered/Resolved]
  - Face oedema [Recovered/Resolved]
  - Rash generalised [Recovered/Resolved]
  - Erythema [Recovered/Resolved]

NARRATIVE: CASE EVENT DATE: 20170526
